FAERS Safety Report 17560771 (Version 1)
Quarter: 2020Q1

REPORT INFORMATION
  Report Type: Spontaneous
  Country: CO (occurrence: CO)
  Receive Date: 20200319
  Receipt Date: 20200319
  Transmission Date: 20200409
  Serious: Yes (Hospitalization)
  Sender: FDA-Public Use
  Company Number: CO-SA-2020SA066614

PATIENT
  Age: 23 Year
  Sex: Female
  Weight: 60 kg

DRUGS (1)
  1. IMIGLUCERASE [Suspect]
     Active Substance: IMIGLUCERASE
     Indication: GAUCHER^S DISEASE
     Dosage: 53.33 IU/KG, Q15D
     Route: 041
     Dates: start: 20140313, end: 20200208

REACTIONS (3)
  - Headache [Unknown]
  - Vomiting [Unknown]
  - Migraine [Unknown]

NARRATIVE: CASE EVENT DATE: 20200309
